FAERS Safety Report 9628908 (Version 1)
Quarter: 2013Q4

REPORT INFORMATION
  Report Type: Spontaneous
  Country: US (occurrence: US)
  Receive Date: 20131017
  Receipt Date: 20131017
  Transmission Date: 20140711
  Serious: Yes (Hospitalization)
  Sender: FDA-Public Use
  Company Number: US-INCYTE CORPORATION-2013IN002388

PATIENT
  Age: 74 Year
  Sex: Female

DRUGS (2)
  1. JAKAFI [Suspect]
     Indication: BREAST CANCER FEMALE
     Dosage: 10 MG, BID
     Route: 048
     Dates: start: 20130826
  2. MESNEX [Concomitant]
     Dosage: 400 MG, UNK
     Route: 065

REACTIONS (1)
  - Hospitalisation [Unknown]
